FAERS Safety Report 7013153-6 (Version None)
Quarter: 2010Q3

REPORT INFORMATION
  Report Type: 
  Country: None (occurrence: None)
  Receive Date: 20100924
  Receipt Date: 20100921
  Transmission Date: 20110219
  Serious: Yes (Other)
  Sender: FDA-Public Use
  Company Number: US-PFIZER INC-2010120557

PATIENT
  Sex: Female
  Weight: 70.748 kg

DRUGS (14)
  1. CELEBREX [Suspect]
     Indication: FIBROMYALGIA
     Dosage: 200 MG, 1X/DAY
     Route: 048
     Dates: start: 19980101
  2. CELEBREX [Suspect]
     Dosage: 200 MG, 1X/DAY
     Route: 048
     Dates: start: 20100920
  3. FLONASE [Concomitant]
     Dosage: 50 UG, UNK
     Route: 045
  4. HYDROCHLOROTHIAZIDE [Concomitant]
     Indication: HYPERTENSION
     Dosage: 25 MG, UNK
  5. MONTELUKAST [Concomitant]
     Indication: ASTHMA
     Dosage: 10 MG, UNK
  6. ADVAIR DISKUS 100/50 [Concomitant]
     Indication: ASTHMA
     Dosage: 100/50
  7. EFFEXOR XR [Concomitant]
     Indication: DEPRESSION
     Dosage: 150 MG, UNK
  8. NEXIUM [Concomitant]
     Dosage: 40 MG, UNK
  9. KLOR-CON [Concomitant]
     Dosage: 10 MEQ, UNK
  10. AMITRIPTYLINE [Concomitant]
     Dosage: 25 MG, UNK
  11. ZYRTEC [Concomitant]
     Indication: HYPERSENSITIVITY
     Dosage: 10 MG, UNK
  12. LEVOTHYROXINE [Concomitant]
     Dosage: 88 UG, UNK
  13. VENTOLIN [Concomitant]
     Indication: ASTHMA
     Dosage: UNK
  14. VITAMINS [Concomitant]
     Dosage: UNK

REACTIONS (2)
  - LIMB DISCOMFORT [None]
  - PAIN [None]
